FAERS Safety Report 24273878 (Version 1)
Quarter: 2024Q3

REPORT INFORMATION
  Report Type: Spontaneous
  Country: US (occurrence: US)
  Receive Date: 20240902
  Receipt Date: 20240902
  Transmission Date: 20241017
  Serious: No
  Sender: ASTELLAS
  Company Number: US-ASTELLAS-2024US007744

PATIENT
  Age: 77 Year
  Sex: Male

DRUGS (1)
  1. XOSPATA [Suspect]
     Active Substance: GILTERITINIB
     Indication: Product used for unknown indication
     Dosage: 120 MG, ONCE DAILY
     Route: 065
     Dates: start: 202312

REACTIONS (2)
  - Cognitive disorder [Unknown]
  - Confusional state [Unknown]
